FAERS Safety Report 26040231 (Version 1)
Quarter: 2025Q4

REPORT INFORMATION
  Report Type: Spontaneous
  Country: HK (occurrence: HK)
  Receive Date: 20251113
  Receipt Date: 20251113
  Transmission Date: 20260118
  Serious: Yes (Life-Threatening, Other)
  Sender: RANBAXY
  Company Number: HK-SUN PHARMACEUTICAL INDUSTRIES INC-2025R1-535475

PATIENT
  Age: 60 Year
  Sex: Male

DRUGS (1)
  1. FEBUXOSTAT [Suspect]
     Active Substance: FEBUXOSTAT
     Indication: Tumour lysis syndrome
     Dosage: 80 MILLIGRAM
     Route: 065

REACTIONS (2)
  - Nodal arrhythmia [Unknown]
  - Cardiac arrest [Unknown]
